FAERS Safety Report 8582619 (Version 3)
Quarter: 2013Q1

REPORT INFORMATION
  Report Type: Spontaneous
  Country: GB (occurrence: GB)
  Receive Date: 20120529
  Receipt Date: 20130204
  Transmission Date: 20140127
  Serious: Yes (Other)
  Sender: FDA-Public Use
  Company Number: PHFR2012GB003172

PATIENT
  Sex: Male
  Weight: 51.7 kg

DRUGS (3)
  1. EXJADE [Suspect]
     Indication: THALASSAEMIA
     Dosage: 1 G, DAILY
     Route: 048
     Dates: start: 20120509, end: 20120608
  2. EXJADE [Suspect]
     Indication: IRON OVERLOAD
  3. INSULIN [Concomitant]
     Dosage: UKN

REACTIONS (2)
  - Neutrophil count decreased [Unknown]
  - Autoimmune neutropenia [Unknown]
